FAERS Safety Report 21080987 (Version 1)
Quarter: 2022Q3

REPORT INFORMATION
  Report Type: Spontaneous
  Country: ES (occurrence: ES)
  Receive Date: 20220714
  Receipt Date: 20220714
  Transmission Date: 20221027
  Serious: Yes (Disabling)
  Sender: FDA-Public Use
  Company Number: ES-SA-SAC20220712000990

PATIENT
  Sex: Female

DRUGS (4)
  1. DUPILUMAB [Suspect]
     Active Substance: DUPILUMAB
     Indication: Chronic rhinosinusitis with nasal polyps
  2. DUPILUMAB [Suspect]
     Active Substance: DUPILUMAB
     Indication: Asthma
  3. OMALIZUMAB [Concomitant]
     Active Substance: OMALIZUMAB
  4. BENRALIZUMAB [Concomitant]
     Active Substance: BENRALIZUMAB

REACTIONS (3)
  - Loss of personal independence in daily activities [Unknown]
  - Vomiting [Unknown]
  - Therapeutic response unexpected [Unknown]
